FAERS Safety Report 8578997-8 (Version None)
Quarter: 2012Q3

REPORT INFORMATION
  Report Type: 
  Country: None (occurrence: None)
  Receive Date: 20120808
  Receipt Date: 20120801
  Transmission Date: 20120928
  Serious: Yes (Hospitalization, Other)
  Sender: FDA-Public Use
  Company Number: FR-PFIZER INC-2012186273

PATIENT
  Age: 74 Year
  Sex: Male

DRUGS (14)
  1. ATORVASTATIN [Suspect]
     Indication: MYOCARDIAL INFARCTION
     Dosage: UNK
     Route: 048
     Dates: start: 20120611
  2. EZETIMIBE [Concomitant]
     Dosage: LONG TERM
  3. AMLODIPINE BESYLATE [Suspect]
     Indication: MYOCARDIAL INFARCTION
     Dosage: UNK
     Route: 048
     Dates: start: 20120611
  4. PLAVIX [Suspect]
     Indication: MYOCARDIAL INFARCTION
     Dosage: UNK
     Route: 048
     Dates: start: 20120611
  5. SECTRAL [Concomitant]
     Dosage: LONG TERM
  6. LASIX [Concomitant]
     Dosage: LONG TERM
  7. ALFUZOSIN HYDROCHLORIDE [Concomitant]
     Dosage: LONG TERM
  8. ERGOCALCIFEROL [Concomitant]
     Dosage: LONG TERM
  9. TARGOCID [Suspect]
     Indication: STAPHYLOCOCCAL BACTERAEMIA
     Dosage: UNK
     Route: 042
     Dates: start: 20120621, end: 20120705
  10. OFLOXACIN [Suspect]
     Indication: STAPHYLOCOCCAL BACTERAEMIA
     Dosage: UNK
     Route: 048
     Dates: start: 20120621, end: 20120705
  11. BISOPROLOL FUMARATE [Suspect]
     Indication: MYOCARDIAL INFARCTION
     Dosage: UNK
     Route: 048
     Dates: start: 20120611
  12. NOVOLOG MIX 70/30 [Concomitant]
     Dosage: LONG TERM
  13. ASPIRIN [Concomitant]
     Dosage: LONG TERM
  14. ATACAND [Concomitant]
     Dosage: LONG TERM

REACTIONS (5)
  - STAPHYLOCOCCAL INFECTION [None]
  - PYREXIA [None]
  - EOSINOPHILIA [None]
  - DIABETES MELLITUS INADEQUATE CONTROL [None]
  - RENAL FAILURE ACUTE [None]
